FAERS Safety Report 7591954-3 (Version None)
Quarter: 2011Q3

REPORT INFORMATION
  Report Type: 
  Country: None (occurrence: None)
  Receive Date: 20110701
  Receipt Date: 20110701
  Transmission Date: 20111222
  Serious: No
  Sender: FDA-Public Use
  Company Number: None

PATIENT
  Sex: Male
  Weight: 86.1834 kg

DRUGS (2)
  1. TOPAMAX [Suspect]
     Indication: MIGRAINE
     Dosage: 50MG AM; 50MG PM
     Dates: start: 20070501
  2. TOPAMAX [Suspect]
     Indication: MIGRAINE
     Dosage: 50MG AM; 50MG PM
     Dates: start: 20110601

REACTIONS (8)
  - PARAESTHESIA [None]
  - WITHDRAWAL SYNDROME [None]
  - HYPOAESTHESIA [None]
  - COUGH [None]
  - MEMORY IMPAIRMENT [None]
  - INSOMNIA [None]
  - ANXIETY [None]
  - NIGHTMARE [None]
